FAERS Safety Report 10549366 (Version 2)
Quarter: 2014Q4

REPORT INFORMATION
  Report Type: Spontaneous
  Country: US (occurrence: US)
  Receive Date: 20141028
  Receipt Date: 20141028
  Transmission Date: 20150529
  Serious: Yes (Hospitalization)
  Sender: FDA-Public Use
  Company Number: US-BRISTOL-MYERS SQUIBB COMPANY-21313028

PATIENT
  Age: 50 Year
  Sex: Male

DRUGS (2)
  1. ABILIFY [Suspect]
     Active Substance: ARIPIPRAZOLE
     Indication: SCHIZOAFFECTIVE DISORDER
     Dosage: INITIAL DOSE:5MG
     Route: 048
     Dates: start: 20140122
  2. ABILIFY [Suspect]
     Active Substance: ARIPIPRAZOLE
     Indication: PERSONALITY DISORDER
     Dosage: INITIAL DOSE:5MG
     Route: 048
     Dates: start: 20140122

REACTIONS (2)
  - Off label use [Unknown]
  - Gambling [Not Recovered/Not Resolved]

NARRATIVE: CASE EVENT DATE: 20081119
